FAERS Safety Report 6208150-4 (Version None)
Quarter: 2009Q2

REPORT INFORMATION
  Report Type: 
  Country: None (occurrence: None)
  Receive Date: 20090529
  Receipt Date: 20090515
  Transmission Date: 20091009
  Serious: Yes (Other)
  Sender: FDA-Public Use
  Company Number: US-ROCHE-587134

PATIENT
  Sex: Male

DRUGS (2)
  1. PEGASYS [Suspect]
     Indication: DRUG USE FOR UNKNOWN INDICATION
     Dosage: GENERIC NAME REPORTED AS: PEGYLATED-40K INTERFERON ALFA- 2A, PATIENT RECEIVED 2 INJECTIONS
     Route: 065
     Dates: start: 20080801
  2. COPEGUS [Suspect]
     Indication: DRUG USE FOR UNKNOWN INDICATION
     Route: 065
     Dates: start: 20080801

REACTIONS (7)
  - CONVULSION [None]
  - DEHYDRATION [None]
  - DIZZINESS [None]
  - HYPOTENSION [None]
  - INJECTION SITE REACTION [None]
  - NAUSEA [None]
  - RASH [None]
